FAERS Safety Report 19093133 (Version 4)
Quarter: 2021Q2

REPORT INFORMATION
  Report Type: Report from Study
  Country: DE (occurrence: DE)
  Receive Date: 20210405
  Receipt Date: 20210428
  Transmission Date: 20210717
  Serious: Yes (Hospitalization, Other)
  Sender: FDA-Public Use
  Company Number: DE-BRISTOL-MYERS SQUIBB COMPANY-BMS-2021-023091

PATIENT
  Age: 60 Year
  Sex: Male
  Weight: 46.9 kg

DRUGS (1)
  1. NIVOLUMAB [Suspect]
     Active Substance: NIVOLUMAB
     Indication: SQUAMOUS CELL CARCINOMA OF HEAD AND NECK
     Dosage: 240 MILLIGRAM, Q2WK
     Route: 042
     Dates: start: 20201229, end: 20210319

REACTIONS (12)
  - Pleural effusion [Unknown]
  - Lymphangitis [Unknown]
  - Malignant neoplasm progression [Not Recovered/Not Resolved]
  - Nocturia [Unknown]
  - Lymphoedema [Unknown]
  - Gastritis [Unknown]
  - Insomnia [Unknown]
  - Dysphagia [Not Recovered/Not Resolved]
  - Immune-mediated lung disease [Unknown]
  - Pain in extremity [Unknown]
  - Pneumonia fungal [Recovered/Resolved]
  - Erosive duodenitis [Unknown]

NARRATIVE: CASE EVENT DATE: 20210311
